FAERS Safety Report 13546404 (Version 1)
Quarter: 2017Q2

REPORT INFORMATION
  Report Type: Spontaneous
  Country: US (occurrence: US)
  Receive Date: 20170515
  Receipt Date: 20170515
  Transmission Date: 20170830
  Serious: Yes (Hospitalization, Other)
  Sender: FDA-Public Use
  Company Number: US-BAXTER-2017BAX020080

PATIENT

DRUGS (11)
  1. METHOTREXATE. [Suspect]
     Active Substance: METHOTREXATE
     Indication: B-CELL TYPE ACUTE LEUKAEMIA
     Dosage: POMP MAINTENANCE
     Route: 065
     Dates: start: 20160711, end: 20170112
  2. HYDROXYUREA. [Suspect]
     Active Substance: HYDROXYUREA
     Indication: PROPHYLAXIS
     Route: 065
     Dates: start: 20170207
  3. CYCLOPHOSPHAMIDE FOR INJECTION, USP [Suspect]
     Active Substance: CYCLOPHOSPHAMIDE
     Indication: B-CELL TYPE ACUTE LEUKAEMIA
     Dosage: 8 COURSES, HYPER-CVAD THERAPY
     Route: 065
     Dates: start: 20151023, end: 20160524
  4. VINCRISTINE [Suspect]
     Active Substance: VINCRISTINE
     Indication: B-CELL TYPE ACUTE LEUKAEMIA
     Dosage: 8 COURSES, HYPER-CVAD THERAPY
     Route: 065
     Dates: start: 20151023, end: 20160524
  5. BLINCYTO [Suspect]
     Active Substance: BLINATUMOMAB
     Dosage: SECOND COURSE
     Route: 065
     Dates: start: 20170404
  6. DOXORUBICIN [Suspect]
     Active Substance: DOXORUBICIN
     Indication: B-CELL TYPE ACUTE LEUKAEMIA
     Dosage: 8 COURSES, HYPER-CVAD THERAPY
     Route: 065
     Dates: start: 20151023, end: 20160524
  7. DEXAMETHASONE. [Suspect]
     Active Substance: DEXAMETHASONE
     Indication: B-CELL TYPE ACUTE LEUKAEMIA
     Dosage: 8 COURSES, HYPER-CVAD THERAPY
     Route: 065
     Dates: start: 20151023, end: 20160524
  8. PREDNISONE. [Suspect]
     Active Substance: PREDNISONE
     Indication: B-CELL TYPE ACUTE LEUKAEMIA
     Dosage: POMP MAINTENANCE
     Route: 065
     Dates: start: 20160711, end: 20170112
  9. VINCRISTINE [Suspect]
     Active Substance: VINCRISTINE
     Dosage: POMP MAINTENANCE
     Route: 065
     Dates: start: 20160711, end: 20170112
  10. 6-MERCAPTOPURINE [Suspect]
     Active Substance: MERCAPTOPURINE
     Indication: B-CELL TYPE ACUTE LEUKAEMIA
     Dosage: POMP MAINTENANCE
     Route: 065
     Dates: start: 20160711, end: 20170112
  11. BLINCYTO [Suspect]
     Active Substance: BLINATUMOMAB
     Indication: ACUTE LYMPHOCYTIC LEUKAEMIA RECURRENT
     Dosage: FIRST COURSE
     Route: 065
     Dates: start: 20170207

REACTIONS (12)
  - Cytokine release syndrome [Unknown]
  - Lung infiltration [Unknown]
  - Tumour lysis syndrome [Unknown]
  - Transaminases increased [Unknown]
  - Acute lymphocytic leukaemia recurrent [Unknown]
  - Malnutrition [Unknown]
  - Febrile neutropenia [Unknown]
  - Hypoxia [Unknown]
  - Pleural effusion [Unknown]
  - Acute lymphocytic leukaemia recurrent [Unknown]
  - Clostridium difficile colitis [Unknown]
  - Asthenia [Unknown]

NARRATIVE: CASE EVENT DATE: 201702
